FAERS Safety Report 8936388 (Version 1)
Quarter: 2012Q4

REPORT INFORMATION
  Report Type: 
  Country: GB (occurrence: GB)
  Receive Date: 20121130
  Receipt Date: 20121130
  Transmission Date: 20130627
  Serious: Yes (Hospitalization)
  Sender: FDA-Public Use
  Company Number: GB-PFIZER INC-2012296569

PATIENT
  Age: 43 Year
  Sex: Male
  Weight: 94 kg

DRUGS (2)
  1. GENOTROPIN [Suspect]
     Dosage: 0.7 mg, 1x/day, 7 injections/week
     Route: 058
     Dates: start: 20041222
  2. HYDROCORTISONE [Concomitant]
     Indication: ACTH DECREASED
     Dosage: UNK
     Dates: start: 20030228

REACTIONS (1)
  - Pneumonia [Unknown]
